FAERS Safety Report 7547131-5 (Version None)
Quarter: 2011Q2

REPORT INFORMATION
  Report Type: 
  Country: None (occurrence: None)
  Receive Date: 20110614
  Receipt Date: 20110602
  Transmission Date: 20111010
  Serious: No
  Sender: FDA-Public Use
  Company Number: JP-ELI_LILLY_AND_COMPANY-JP201104002106

PATIENT
  Sex: Male
  Weight: 69.9 kg

DRUGS (5)
  1. HYDROXOCOBALAMIN ACETATE [Concomitant]
     Indication: PROPHYLAXIS
     Dosage: 1 MG, QD
     Route: 030
     Dates: start: 20101228, end: 20110301
  2. ALIMTA [Suspect]
     Dosage: 730 MG, SINGLE
     Route: 042
     Dates: start: 20110419, end: 20110419
  3. ALIMTA [Suspect]
     Indication: LUNG ADENOCARCINOMA STAGE IV
     Dosage: 915 MG, OTHER
     Route: 042
     Dates: start: 20110208, end: 20110329
  4. AMLODIPINE [Concomitant]
     Indication: HYPERTENSION
     Dosage: 5 MG, QD
     Route: 048
     Dates: end: 20110321
  5. PANVITAN [Concomitant]
     Indication: PROPHYLAXIS
     Dosage: 1 G, QD
     Route: 048
     Dates: start: 20110201, end: 20110509

REACTIONS (1)
  - HEPATIC FUNCTION ABNORMAL [None]
